FAERS Safety Report 17190548 (Version 2)
Quarter: 2020Q1

REPORT INFORMATION
  Report Type: Other
  Country: DE (occurrence: DE)
  Receive Date: 20191223
  Receipt Date: 20200123
  Transmission Date: 20200409
  Serious: Yes (Death)
  Sender: FDA-Public Use
  Company Number: DE-DEXPHARM-20191184

PATIENT
  Age: 36 Year
  Sex: Female

DRUGS (11)
  1. U-47700 [Suspect]
     Active Substance: U-47700
  2. N-DESMETHYLVENLAFAXINE [Suspect]
     Active Substance: N-DESMETHYLVENLAFAXINE
  3. OXAZEPAM. [Suspect]
     Active Substance: OXAZEPAM
  4. TEMAZEPAM. [Suspect]
     Active Substance: TEMAZEPAM
  5. VENLAFAXINE [Suspect]
     Active Substance: VENLAFAXINE HYDROCHLORIDE
  6. DIAZEPAM. [Suspect]
     Active Substance: DIAZEPAM
  7. PROMETHAZINE [Suspect]
     Active Substance: PROMETHAZINE HYDROCHLORIDE
  8. NOROXYCODONE [Suspect]
     Active Substance: OXYCODONE
  9. PIPAMPERONE [Suspect]
     Active Substance: PIPAMPERONE
  10. NORDAZEPAM [Suspect]
     Active Substance: NORDAZEPAM
  11. OXYCODONE [Suspect]
     Active Substance: OXYCODONE

REACTIONS (4)
  - Poisoning [Fatal]
  - Pulmonary oedema [Fatal]
  - Pulmonary haemorrhage [Fatal]
  - Myocarditis [Fatal]
